FAERS Safety Report 21838239 (Version 5)
Quarter: 2024Q1

REPORT INFORMATION
  Report Type: Spontaneous
  Country: US (occurrence: US)
  Receive Date: 20230109
  Receipt Date: 20240321
  Transmission Date: 20240410
  Serious: Yes (Hospitalization, Other)
  Sender: FDA-Public Use
  Company Number: US-PFIZER INC-PV202300004062

PATIENT
  Age: 90 Year
  Sex: Male

DRUGS (1)
  1. VYNDAMAX [Suspect]
     Active Substance: TAFAMIDIS
     Indication: Amyloidosis
     Dosage: 61 MG
     Dates: start: 2020

REACTIONS (11)
  - Atrial fibrillation [Unknown]
  - Deafness [Unknown]
  - Cardiac failure [Unknown]
  - Urinary tract infection [Unknown]
  - Fluid retention [Unknown]
  - Cardiac pacemaker insertion [Unknown]
  - Product dose omission issue [Unknown]
  - Amnesia [Unknown]
  - Confusional state [Unknown]
  - Asthenia [Unknown]
  - Muscle rigidity [Unknown]

NARRATIVE: CASE EVENT DATE: 20240101
